FAERS Safety Report 7662309-8 (Version None)
Quarter: 2011Q3

REPORT INFORMATION
  Report Type: 
  Country: None (occurrence: None)
  Receive Date: 20110805
  Receipt Date: 20101222
  Transmission Date: 20111222
  Serious: No
  Sender: FDA-Public Use
  Company Number: US-ABBOTT-10P-163-0693991-00

PATIENT
  Sex: Male
  Weight: 113.5 kg

DRUGS (5)
  1. NIASPAN [Suspect]
     Indication: HIGH DENSITY LIPOPROTEIN DECREASED
     Dates: start: 20101219
  2. SIMVASTATIN [Concomitant]
     Indication: BLOOD CHOLESTEROL
     Dosage: UNKNOWN
  3. MICARDIS [Concomitant]
     Indication: BLOOD PRESSURE
     Dosage: UNKNOWN
  4. PROTONIX [Concomitant]
     Indication: PRODUCT USED FOR UNKNOWN INDICATION
     Dosage: UNKNOWN
  5. FISH OIL [Concomitant]
     Indication: BLOOD CHOLESTEROL
     Dosage: UNKNOWN

REACTIONS (4)
  - INSOMNIA [None]
  - UPPER-AIRWAY COUGH SYNDROME [None]
  - CONSTIPATION [None]
  - COUGH [None]
